FAERS Safety Report 15392693 (Version 1)
Quarter: 2018Q3

REPORT INFORMATION
  Report Type: Spontaneous
  Country: PR (occurrence: PR)
  Receive Date: 20180911
  Receipt Date: 20180911
  Transmission Date: 20181010
  Serious: Yes (Life-Threatening, Disabling)
  Sender: FDA-Public Use
  Company Number: None

PATIENT
  Age: 20 Year
  Sex: Female
  Weight: 60.75 kg

DRUGS (1)
  1. YES TO TOMATOES CLEAR SKIN CORRECTIVE CONCEALER LIGHT TINT [Suspect]
     Active Substance: SALICYLIC ACID
     Indication: ACNE
     Route: 061
     Dates: start: 20180907, end: 20180907

REACTIONS (6)
  - Pyrexia [None]
  - Respiratory tract congestion [None]
  - Respiration abnormal [None]
  - Nausea [None]
  - Headache [None]
  - Throat tightness [None]

NARRATIVE: CASE EVENT DATE: 20180907
